FAERS Safety Report 17090708 (Version 1)
Quarter: 2019Q4

REPORT INFORMATION
  Report Type: Spontaneous
  Country: US (occurrence: US)
  Receive Date: 20191031
  Receipt Date: 20191031
  Transmission Date: 20200122
  Serious: Yes (Hospitalization)
  Sender: FDA-Public Use
  Company Number: None

PATIENT
  Sex: Female

DRUGS (2)
  1. C-TACROLIMUS SUSP ++ 0.5MG/ML ACCORD HEALTHCARE [Concomitant]
     Indication: LUNG TRANSPLANT
     Route: 048
     Dates: start: 20180223
  2. MYCOPHENOLATE ++ 250MG ACCORD HEALTHCARE [Suspect]
     Active Substance: MYCOPHENOLIC ACID
     Indication: LUNG TRANSPLANT
     Route: 048
     Dates: start: 20170711

REACTIONS (1)
  - Vomiting [None]
